FAERS Safety Report 23984035 (Version 1)
Quarter: 2024Q2

REPORT INFORMATION
  Report Type: Spontaneous
  Country: NZ (occurrence: NZ)
  Receive Date: 20240618
  Receipt Date: 20240618
  Transmission Date: 20240716
  Serious: Yes (Hospitalization)
  Sender: FDA-Public Use
  Company Number: NZ-LEO Pharma-371076

PATIENT
  Sex: Male

DRUGS (1)
  1. TACLONEX [Suspect]
     Active Substance: BETAMETHASONE DIPROPIONATE\CALCIPOTRIENE\CALCIPOTRIENE HYDRATE
     Indication: Psoriasis
     Dosage: DR PRESCRIBED DAIVOBET GEL FOR A PATIENT FOR HIS PSORIASIS ON HIS LOWER LIMBS

REACTIONS (1)
  - Hypersensitivity [Unknown]
